FAERS Safety Report 8101521-0 (Version None)
Quarter: 2012Q1

REPORT INFORMATION
  Report Type: 
  Country: None (occurrence: None)
  Receive Date: 20120129
  Receipt Date: 20111011
  Transmission Date: 20120608
  Serious: No
  Sender: FDA-Public Use
  Company Number: US-ABBOTT-11P-163-0863185-00

PATIENT
  Sex: Female

DRUGS (2)
  1. HUMIRA [Suspect]
     Indication: CROHN'S DISEASE
     Route: 058
     Dates: start: 20110701
  2. HUMIRA [Suspect]
     Indication: RHEUMATOID ARTHRITIS

REACTIONS (2)
  - HYPERSENSITIVITY [None]
  - RESPIRATORY TRACT INFECTION [None]
